FAERS Safety Report 4571874-9 (Version None)
Quarter: 2005Q1

REPORT INFORMATION
  Report Type: 
  Country: None (occurrence: None)
  Receive Date: 20050202
  Receipt Date: 20050119
  Transmission Date: 20050727
  Serious: No
  Sender: FDA-Public Use
  Company Number: MK200412-0293-1

PATIENT

DRUGS (1)
  1. ANAFRANIL [Suspect]
     Dosage: TRANSPLACENTAL; IN UTERO
     Route: 064
     Dates: end: 20041104

REACTIONS (2)
  - CONGENITAL CEREBRAL CYST [None]
  - DRUG EXPOSURE DURING PREGNANCY [None]
